FAERS Safety Report 14624490 (Version 5)
Quarter: 2018Q4

REPORT INFORMATION
  Report Type: Spontaneous
  Country: US (occurrence: US)
  Receive Date: 20180312
  Receipt Date: 20181002
  Transmission Date: 20190204
  Serious: No
  Sender: FDA-Public Use
  Company Number: US-ALKERMES INC.-ALK-2018-001320

PATIENT
  Age: 24 Year
  Sex: Male

DRUGS (1)
  1. ARISTADA [Suspect]
     Active Substance: ARIPIPRAZOLE LAUROXIL
     Indication: SCHIZOPHRENIA
     Dosage: 882 MG, QMO
     Route: 030
     Dates: start: 201712, end: 20180828

REACTIONS (9)
  - Panic reaction [Recovered/Resolved]
  - Musculoskeletal stiffness [Not Recovered/Not Resolved]
  - Apathy [Not Recovered/Not Resolved]
  - Somnolence [Unknown]
  - Middle insomnia [Not Recovered/Not Resolved]
  - Abnormal behaviour [Unknown]
  - Anxiety [Recovered/Resolved]
  - Decreased activity [Unknown]
  - Asthenia [Unknown]

NARRATIVE: CASE EVENT DATE: 2017
